FAERS Safety Report 8091286-3 (Version None)
Quarter: 2012Q1

REPORT INFORMATION
  Report Type: 
  Country: None (occurrence: None)
  Receive Date: 20120130
  Receipt Date: 20120130
  Transmission Date: 20120608
  Serious: Yes (Life-Threatening, Hospitalization)
  Sender: FDA-Public Use
  Company Number: None

PATIENT
  Age: 75 Year
  Sex: Male
  Weight: 98 kg

DRUGS (2)
  1. PRAVASTATIN [Suspect]
     Indication: HYPERLIPIDAEMIA
     Dosage: 20 MG HS PO
     Route: 048
     Dates: start: 20111118, end: 20120110
  2. AMLODIPINE BESYLATE [Suspect]
     Indication: HYPERTENSION
     Dosage: 10 MG EVERY DAY
     Dates: start: 20100115

REACTIONS (3)
  - RHABDOMYOLYSIS [None]
  - MYOSITIS [None]
  - SUICIDAL IDEATION [None]
